FAERS Safety Report 13402673 (Version 1)
Quarter: 2017Q2

REPORT INFORMATION
  Report Type: Spontaneous
  Country: US (occurrence: US)
  Receive Date: 20170404
  Receipt Date: 20170404
  Transmission Date: 20170830
  Serious: Yes (Other)
  Sender: FDA-Public Use
  Company Number: US-JAZZ-JPI-P-030025

PATIENT
  Sex: Male
  Weight: 103.64 kg

DRUGS (8)
  1. XYREM [Suspect]
     Active Substance: SODIUM OXYBATE
     Indication: CATAPLEXY
     Dosage: UNK UNKNOWN, SINGLE
     Route: 048
     Dates: end: 20120824
  2. ALBUTEROL SULFATE. [Concomitant]
     Active Substance: ALBUTEROL SULFATE
     Indication: DYSPNOEA
  3. DEXTROAMPHET SACCHARAT, AMPHET ASPARTATE, DEXTROAMPHET SULFATE AND AMPHET SULFAT [Concomitant]
     Active Substance: AMPHETAMINE ASPARTATE\AMPHETAMINE SULFATE\DEXTROAMPHETAMINE SACCHARATE\DEXTROAMPHETAMINE SULFATE
     Indication: CATAPLEXY
     Dosage: 30 MG PRN (ONE HALF TABLET)
     Route: 048
  4. ALBUTEROL SULFATE. [Concomitant]
     Active Substance: ALBUTEROL SULFATE
     Indication: COUGH
     Dosage: SINGLE (108(90BASE) MCG 1-2 PUFFS QID PRN)
  5. TIZANIDINE. [Concomitant]
     Active Substance: TIZANIDINE
     Indication: ANXIETY
     Dosage: 4 MG SINGLE (ONE TO TWO TIMES PER WEEK)
  6. XYREM [Suspect]
     Active Substance: SODIUM OXYBATE
     Indication: NARCOLEPSY
     Route: 048
     Dates: start: 20030114
  7. XYREM [Suspect]
     Active Substance: SODIUM OXYBATE
     Dosage: 3.75 G, BID
     Route: 048
     Dates: start: 20120825
  8. OXYCODONE AND ACETAMINOPHEN [Concomitant]
     Active Substance: ACETAMINOPHEN\OXYCODONE HYDROCHLORIDE
     Indication: PRODUCT USED FOR UNKNOWN INDICATION
     Dosage: SINGLE (10-325 MILLIGRAM)

REACTIONS (8)
  - Tenoplasty [Recovered/Resolved]
  - Asthma [Recovered/Resolved]
  - Knee operation [Recovered/Resolved]
  - Sinusitis [Recovered/Resolved]
  - Tendon rupture [Recovered/Resolved]
  - Histoplasmosis [Unknown]
  - Dyspnoea [Unknown]
  - Hernia repair [Recovered/Resolved]

NARRATIVE: CASE EVENT DATE: 2007
